FAERS Safety Report 7555952-8 (Version None)
Quarter: 2011Q2

REPORT INFORMATION
  Report Type: 
  Country: None (occurrence: None)
  Receive Date: 20110618
  Receipt Date: 20110606
  Transmission Date: 20111010
  Serious: Yes (Other)
  Sender: FDA-Public Use
  Company Number: US-BAYER-201040874NA

PATIENT
  Age: 24 Year
  Sex: Female
  Weight: 95.238 kg

DRUGS (6)
  1. DROSPIRENONE AND ETHINYL ESTRADIOL [Suspect]
     Dosage: UNK
     Dates: start: 20060101, end: 20101001
  2. YAZ [Suspect]
     Dosage: UNK
     Dates: start: 20060101, end: 20101001
  3. YASMIN [Suspect]
     Indication: PRODUCT USED FOR UNKNOWN INDICATION
     Dosage: ONE TABLET, QD
     Route: 048
     Dates: start: 20060101, end: 20091001
  4. YAZ [Suspect]
     Indication: PRODUCT USED FOR UNKNOWN INDICATION
     Dosage: ONE TABLET, QD
     Route: 048
     Dates: start: 20060101, end: 20091001
  5. DROSPIRENONE AND ETHINYL ESTRADIOL [Suspect]
     Indication: PRODUCT USED FOR UNKNOWN INDICATION
     Dosage: ONE TABLET, QD
     Route: 048
     Dates: start: 20060101, end: 20091001
  6. YASMIN [Suspect]
     Dosage: UNK
     Dates: start: 20060101, end: 20101001

REACTIONS (3)
  - CHOLECYSTITIS [None]
  - CHOLELITHIASIS [None]
  - NAUSEA [None]
